FAERS Safety Report 10575349 (Version 1)
Quarter: 2014Q4

REPORT INFORMATION
  Report Type: Spontaneous
  Country: JP (occurrence: None)
  Receive Date: 20141107
  Receipt Date: 20141107
  Transmission Date: 20150529
  Serious: Yes (Other)
  Sender: FDA-Public Use
  Company Number: COR_00141_2014

PATIENT
  Sex: Male

DRUGS (5)
  1. CARBOPLATIN (CARBOPLATIN) [Suspect]
     Active Substance: CARBOPLATIN
     Indication: TESTIS CANCER
     Dosage: 1000 MG/M**2, (ONE CYCLE)?
  2. BLEOMYCIN [Suspect]
     Active Substance: BLEOMYCIN SULFATE
     Indication: TESTIS CANCER
     Dosage: 30 MG [PER DAY ON DAYS 1, 8 AND 15, 5 CYCLES, TOTAL DOSE { 200MG] INTRAVENOUS (NOT OTHERWISE SPECIFIED)
     Route: 042
  3. CYCLOPHOSPHAMIDE (CYCLOPHOSPHAMIDE) [Suspect]
     Active Substance: CYCLOPHOSPHAMIDE
     Indication: TESTIS CANCER
     Dosage: 6000 MG/M2, [ONE CYCLE]?
  4. ETOPOSIDE (ETOPOSIDE) [Suspect]
     Active Substance: ETOPOSIDE
     Indication: TESTIS CANCER
     Dosage: 100 MG/M2 (PER DAY FROM DAYS 1 TO 5, 5 CYCLES) INTRAVENOUS (NOT OTHERWISE SPECIFIED)?
     Route: 042
  5. CISPLATIN (CISPLATIN) [Suspect]
     Active Substance: CISPLATIN
     Indication: TESTIS CANCER
     Dosage: 20 MG/M2 [PER DAY, FROM DAYS 1 TO 5, 5 CYCLES] INTRAVENOUS (NOT OTHERWISE SPECIFIED)]?
     Route: 042

REACTIONS (1)
  - Azoospermia [None]
